FAERS Safety Report 9717631 (Version 2)
Quarter: 2013Q4

REPORT INFORMATION
  Report Type: Spontaneous
  Country: US (occurrence: None)
  Receive Date: 20131122
  Receipt Date: 20131212
  Transmission Date: 20140711
  Serious: Yes (Other)
  Sender: FDA-Public Use
  Company Number: 2013-US-003129

PATIENT
  Age: 24 Year
  Sex: Female
  Weight: 55.8 kg

DRUGS (9)
  1. XYREM (SODIUM OXYBATE) ORAL SOLUTION, 500MG/ML [Suspect]
     Indication: NARCOLEPSY
     Route: 048
     Dates: start: 201112, end: 2011
  2. ABILITY (ARIPIPRAZOLE) [Concomitant]
  3. ARMOUR THYROID (THYROID) [Concomitant]
  4. BYSTOLIC (NEBIVOLOL HYDROCHLORIDE) [Concomitant]
  5. DOXEPIN (DOXEPIN HYDROCHLORIDE) [Concomitant]
  6. MIDODRINE (MIDODRINE HYDROCHLORIDE) [Concomitant]
  7. LUNESTA (ESZOPICLONE) [Concomitant]
  8. SEROQUEL (QUETIAPINE FUMARATE) [Concomitant]
  9. TRAZODONE (TRAZODONE HYDROCHLORIDE) [Concomitant]

REACTIONS (6)
  - Eye movement disorder [None]
  - Somnambulism [None]
  - Abnormal sleep-related event [None]
  - Hallucination [None]
  - Gastrooesophageal reflux disease [None]
  - Vomiting [None]
